FAERS Safety Report 15962918 (Version 1)
Quarter: 2019Q1

REPORT INFORMATION
  Report Type: Spontaneous
  Country: US (occurrence: US)
  Receive Date: 20190214
  Receipt Date: 20190214
  Transmission Date: 20190417
  Serious: No
  Sender: FDA-Public Use
  Company Number: US-MYLANLABS-2019M1009883

PATIENT

DRUGS (5)
  1. BENEFIBER                          /00677201/ [Concomitant]
     Active Substance: ICODEXTRIN
     Dosage: UNK
  2. PROPRANOLOL HYDROCHLORIDE TABLETS, USP [Suspect]
     Active Substance: PROPRANOLOL HYDROCHLORIDE
     Indication: BLOOD PRESSURE MEASUREMENT
     Dosage: 5 MILLIGRAM
     Route: 065
  3. PROPRANOLOL HYDROCHLORIDE TABLETS, USP [Suspect]
     Active Substance: PROPRANOLOL HYDROCHLORIDE
     Indication: PANIC ATTACK
  4. LORAZEPAM. [Suspect]
     Active Substance: LORAZEPAM
     Indication: ANXIETY
  5. LORAZEPAM. [Suspect]
     Active Substance: LORAZEPAM
     Indication: PANIC ATTACK
     Dosage: 1 MILLIGRAM, UNK
     Route: 065
     Dates: end: 20190101

REACTIONS (7)
  - Heart rate increased [Unknown]
  - Feeling abnormal [Unknown]
  - Heart rate irregular [Unknown]
  - Panic attack [Recovered/Resolved]
  - Headache [Unknown]
  - Off label use [Unknown]
  - Anxiety [Unknown]
